FAERS Safety Report 4483799-8 (Version None)
Quarter: 2004Q4

REPORT INFORMATION
  Report Type: 
  Country: None (occurrence: None)
  Receive Date: 20041025
  Receipt Date: 20041013
  Transmission Date: 20050328
  Serious: Yes (Other)
  Sender: FDA-Public Use
  Company Number: US-ABBOTT-04P-168-0277118-00

PATIENT
  Sex: Female
  Weight: 70.37 kg

DRUGS (1)
  1. HUMIRA [Suspect]
     Indication: RHEUMATOID ARTHRITIS
     Route: 058
     Dates: start: 20030101, end: 20040701

REACTIONS (7)
  - AGEUSIA [None]
  - ANOSMIA [None]
  - DRY MOUTH [None]
  - EAR DISORDER [None]
  - GINGIVAL ABSCESS [None]
  - PHARYNGOLARYNGEAL PAIN [None]
  - VISION BLURRED [None]
